FAERS Safety Report 21613865 (Version 2)
Quarter: 2022Q4

REPORT INFORMATION
  Report Type: Spontaneous
  Country: US (occurrence: None)
  Receive Date: 20221118
  Receipt Date: 20221230
  Transmission Date: 20230113
  Serious: No
  Sender: FDA-Public Use
  Company Number: 2022A353859

PATIENT
  Sex: Female
  Weight: 56.7 kg

DRUGS (2)
  1. SYMBICORT [Suspect]
     Active Substance: BUDESONIDE\FORMOTEROL FUMARATE DIHYDRATE
     Indication: Asthma
     Dosage: 2 PUFFS TWICE DAILY
     Route: 055
  2. SYMBICORT [Suspect]
     Active Substance: BUDESONIDE\FORMOTEROL FUMARATE DIHYDRATE
     Indication: Emphysema
     Dosage: 2 PUFFS TWICE DAILY
     Route: 055

REACTIONS (3)
  - Emphysema [Unknown]
  - Wrong technique in device usage process [Unknown]
  - Device malfunction [Unknown]
